FAERS Safety Report 7747025-6 (Version None)
Quarter: 2011Q3

REPORT INFORMATION
  Report Type: 
  Country: None (occurrence: None)
  Receive Date: 20110913
  Receipt Date: 20110907
  Transmission Date: 20111222
  Serious: Yes (Death, Disabling)
  Sender: FDA-Public Use
  Company Number: PHHY2009IT57639

PATIENT
  Sex: Female

DRUGS (2)
  1. ZOMETA [Suspect]
     Indication: METASTASES TO BONE
     Dosage: 4 MG, QMO
     Route: 042
     Dates: start: 20040514, end: 20060222
  2. TAMOXIFEN CITRATE [Concomitant]
     Dosage: UNK UKN, UNK

REACTIONS (2)
  - OSTEONECROSIS OF JAW [None]
  - DEATH [None]
